FAERS Safety Report 13268401 (Version 2)
Quarter: 2017Q1

REPORT INFORMATION
  Report Type: Spontaneous
  Country: GR (occurrence: GR)
  Receive Date: 20170224
  Receipt Date: 20170310
  Transmission Date: 20170428
  Serious: Yes (Other)
  Sender: FDA-Public Use
  Company Number: PHHY2017GR011626

PATIENT
  Age: 38 Year
  Sex: Male

DRUGS (10)
  1. VIREAD [Interacting]
     Active Substance: TENOFOVIR DISOPROXIL FUMARATE
     Indication: CHRONIC HEPATITIS B
     Dosage: 1 DF, BID (1X1/ DAY)
     Route: 065
     Dates: start: 201402
  2. DESFERAL [Suspect]
     Active Substance: DEFEROXAMINE MESYLATE
     Indication: SERUM FERRITIN INCREASED
     Dosage: 500 MG, UNK (5 AMP 500MG/ 3 TO 4 A WEEK)
     Route: 065
     Dates: start: 20150122, end: 20150705
  3. DIUREN [Concomitant]
     Active Substance: FUROSEMIDE
     Indication: HYPERCALCIURIA
     Dosage: 1 DF, BID
     Route: 065
     Dates: start: 20120327
  4. NEBIDO [Concomitant]
     Active Substance: TESTOSTERONE UNDECANOATE
     Indication: HYPOGONADISM
     Dosage: UNK, BID (1X1/ EVERY THREE MONTHS)
  5. EXJADE [Suspect]
     Active Substance: DEFERASIROX
     Indication: THALASSAEMIA BETA
     Dosage: 29 MG/KG, UNK (1750 MG/24 H)
     Route: 065
     Dates: start: 20080601, end: 20150705
  6. CARVEPEN [Concomitant]
     Active Substance: CARVEDILOL
     Indication: ATRIAL FIBRILLATION
     Dosage: 6.25 MG, UNK (1-1/2-1/ DAY)
     Route: 065
     Dates: start: 20100822
  7. D3 FIX [Concomitant]
     Indication: OSTEOPOROSIS
     Dosage: 1 DF, BID
     Route: 065
     Dates: start: 20140227
  8. XARELTO [Suspect]
     Active Substance: RIVAROXABAN
     Indication: PRODUCT USED FOR UNKNOWN INDICATION
     Dosage: 1 DF, QD
     Route: 065
     Dates: start: 20150520
  9. VIREAD [Interacting]
     Active Substance: TENOFOVIR DISOPROXIL FUMARATE
     Indication: FANCONI SYNDROME ACQUIRED
  10. THYROHORMONE [Concomitant]
     Active Substance: LEVOTHYROXINE SODIUM
     Indication: HYPOTHYROIDISM
     Dosage: UNK, BID (01:1 X 1/ DAY)
     Route: 065

REACTIONS (10)
  - Drug interaction [Recovering/Resolving]
  - Glycosuria [Recovering/Resolving]
  - Abdominal pain upper [Recovering/Resolving]
  - Off label use [Unknown]
  - Myalgia [Recovering/Resolving]
  - Urine uric acid increased [Recovering/Resolving]
  - Transaminases increased [Recovering/Resolving]
  - Toxicity to various agents [Recovering/Resolving]
  - Urine calcium increased [Recovering/Resolving]
  - Albumin urine present [Recovering/Resolving]

NARRATIVE: CASE EVENT DATE: 20150709
